FAERS Safety Report 21502898 (Version 2)
Quarter: 2022Q4

REPORT INFORMATION
  Report Type: Spontaneous
  Country: US (occurrence: US)
  Receive Date: 20221025
  Receipt Date: 20221026
  Transmission Date: 20230112
  Serious: No
  Sender: FDA-Public Use
  Company Number: US-BRISTOL-MYERS SQUIBB COMPANY-2022-125752

PATIENT
  Age: 60 Year
  Sex: Female

DRUGS (2)
  1. ORENCIA [Suspect]
     Active Substance: ABATACEPT
     Indication: Rheumatoid arthritis
     Dosage: DOSE: 125 MG/ML
     Route: 058
     Dates: start: 202207
  2. ORENCIA [Suspect]
     Active Substance: ABATACEPT
     Indication: Multiple sclerosis
     Route: 058
     Dates: start: 20220803

REACTIONS (3)
  - Joint swelling [Unknown]
  - Arthralgia [Unknown]
  - Pain [Recovered/Resolved]
